FAERS Safety Report 8350511-1 (Version None)
Quarter: 2012Q2

REPORT INFORMATION
  Report Type: 
  Country: None (occurrence: None)
  Receive Date: 20120510
  Receipt Date: 20120501
  Transmission Date: 20120825
  Serious: Yes (Hospitalization)
  Sender: FDA-Public Use
  Company Number: US-BAYER-2012-043601

PATIENT
  Age: 18 Year
  Sex: Female
  Weight: 61.4 kg

DRUGS (6)
  1. HEPARIN [Concomitant]
     Dosage: 1000 UNITS PER HOUR
  2. ALBUTEROL [Concomitant]
     Dosage: UNK
     Dates: start: 20040613
  3. TYLENOL W/ CODEINE NO. 3 [Concomitant]
     Indication: BACK PAIN
  4. ZOLOFT [Concomitant]
     Dosage: 50 MG, QD
     Dates: start: 20040613
  5. YASMIN [Suspect]
  6. ZITHROMAX [Concomitant]

REACTIONS (2)
  - PELVIC VENOUS THROMBOSIS [None]
  - PULMONARY EMBOLISM [None]
